FAERS Safety Report 7294195-2 (Version None)
Quarter: 2011Q1

REPORT INFORMATION
  Report Type: 
  Country: None (occurrence: None)
  Receive Date: 20110215
  Receipt Date: 20110203
  Transmission Date: 20110831
  Serious: Yes (Hospitalization)
  Sender: FDA-Public Use
  Company Number: US-ELI_LILLY_AND_COMPANY-US200912004905

PATIENT
  Sex: Female
  Weight: 60.317 kg

DRUGS (4)
  1. BRIMONIDINE [Concomitant]
     Dosage: 1 DROP IN BOTH EYES
     Route: 065
  2. IBUPROFEN [Concomitant]
     Indication: PAIN
     Dosage: 800 MG, AS NEEDED
     Route: 065
  3. FORTEO [Suspect]
     Indication: OSTEOPOROSIS
     Dosage: UNK, UNK
     Dates: start: 20091001
  4. RESTASIS [Concomitant]
     Dosage: 1 DROP BOTH EYES, 2/D
     Route: 065

REACTIONS (11)
  - GAIT DISTURBANCE [None]
  - SINUSITIS [None]
  - FEAR [None]
  - FEELING ABNORMAL [None]
  - VOMITING [None]
  - VISUAL IMPAIRMENT [None]
  - DIARRHOEA [None]
  - NAUSEA [None]
  - VERTIGO [None]
  - BLOOD PRESSURE INCREASED [None]
  - MUSCULOSKELETAL STIFFNESS [None]
